FAERS Safety Report 5504578-6 (Version None)
Quarter: 2007Q4

REPORT INFORMATION
  Report Type: 
  Country: None (occurrence: None)
  Receive Date: 20071031
  Receipt Date: 20071026
  Transmission Date: 20080405
  Serious: Yes (Life-Threatening, Hospitalization)
  Sender: FDA-Public Use
  Company Number: 2007SP021716

PATIENT
  Age: 57 Year
  Sex: Female
  Weight: 58 kg

DRUGS (6)
  1. TEMODAL [Suspect]
     Indication: GLIOBLASTOMA MULTIFORME
     Dosage: 200 MG/M2; QD; PO
     Route: 048
     Dates: start: 20061106, end: 20061110
  2. TEMODAL [Suspect]
     Indication: GLIOBLASTOMA MULTIFORME
     Dosage: 200 MG/M2; QD; PO
     Route: 048
     Dates: start: 20061228, end: 20070101
  3. TEMODAL [Suspect]
     Indication: GLIOBLASTOMA MULTIFORME
     Dosage: 200 MG/M2; QD; PO
     Route: 048
     Dates: start: 20070208, end: 20070212
  4. TEMODAL [Suspect]
     Indication: GLIOBLASTOMA MULTIFORME
     Dosage: 200 MG/M2; QD; PO
     Route: 048
     Dates: start: 20070314, end: 20070318
  5. VALPROATE SODIUM [Suspect]
     Indication: DRUG USE FOR UNKNOWN INDICATION
     Dosage: PO
     Route: 048
  6. NASEA-OD [Concomitant]

REACTIONS (2)
  - PLATELET COUNT DECREASED [None]
  - SUBDURAL HAEMATOMA [None]
